FAERS Safety Report 18874337 (Version 3)
Quarter: 2021Q1

REPORT INFORMATION
  Report Type: Spontaneous
  Country: US (occurrence: US)
  Receive Date: 20210210
  Receipt Date: 20210324
  Transmission Date: 20210420
  Serious: Yes (Other)
  Sender: FDA-Public Use
  Company Number: US-SA-2021SA043716

PATIENT
  Age: 29 Year
  Sex: Male

DRUGS (6)
  1. ALPROLIX [Suspect]
     Active Substance: EFTRENONACOG ALFA
     Indication: HAEMORRHAGE
     Dosage: UNK UNK, PRN
     Route: 042
  2. ALPROLIX [Suspect]
     Active Substance: EFTRENONACOG ALFA
     Dosage: 3200 IU
     Route: 042
     Dates: start: 20210107
  3. ALPROLIX [Suspect]
     Active Substance: EFTRENONACOG ALFA
     Indication: FACTOR IX DEFICIENCY
     Dosage: 3240 IU, QW
     Route: 042
     Dates: start: 202101
  4. ALPROLIX [Suspect]
     Active Substance: EFTRENONACOG ALFA
     Indication: HAEMORRHAGE
     Dosage: UNK UNK, PRN
     Route: 042
  5. ALPROLIX [Suspect]
     Active Substance: EFTRENONACOG ALFA
     Dosage: 3200 IU
     Route: 042
     Dates: start: 20210107
  6. ALPROLIX [Suspect]
     Active Substance: EFTRENONACOG ALFA
     Indication: FACTOR IX DEFICIENCY
     Dosage: 3240 IU, QW
     Route: 042
     Dates: start: 202101

REACTIONS (2)
  - Haemarthrosis [Unknown]
  - Muscle haemorrhage [Unknown]

NARRATIVE: CASE EVENT DATE: 202101
